FAERS Safety Report 10221047 (Version 2)
Quarter: 2014Q3

REPORT INFORMATION
  Report Type: Spontaneous
  Country: DK (occurrence: CH)
  Receive Date: 20140606
  Receipt Date: 20140730
  Transmission Date: 20150326
  Serious: Yes (Hospitalization)
  Sender: FDA-Public Use
  Company Number: CH-FRI-1000067893

PATIENT
  Sex: Female
  Weight: 100 kg

DRUGS (4)
  1. ESCITALOPRAM [Suspect]
     Active Substance: ESCITALOPRAM OXALATE
     Indication: AGGRESSION
     Dosage: 20 MG
     Route: 048
     Dates: start: 20131113
  2. ESCITALOPRAM [Suspect]
     Active Substance: ESCITALOPRAM OXALATE
     Indication: ANXIETY DISORDER
     Dosage: 10 MG
     Route: 048
     Dates: start: 201309, end: 201311
  3. LYRICA [Suspect]
     Active Substance: PREGABALIN
     Dosage: DOSE REDUCED BY HALF
     Route: 048
     Dates: start: 20140323
  4. LYRICA [Suspect]
     Active Substance: PREGABALIN
     Indication: ANXIETY DISORDER
     Dosage: 150 MG
     Route: 048
     Dates: start: 201209

REACTIONS (6)
  - Obesity [Not Recovered/Not Resolved]
  - Libido decreased [Not Recovered/Not Resolved]
  - Wound infection [Recovered/Resolved]
  - Weight increased [Not Recovered/Not Resolved]
  - Irritability [Unknown]
  - Aggression [Unknown]

NARRATIVE: CASE EVENT DATE: 2013
